FAERS Safety Report 25007868 (Version 1)
Quarter: 2025Q1

REPORT INFORMATION
  Report Type: Report from Study
  Country: US (occurrence: US)
  Receive Date: 20250225
  Receipt Date: 20250225
  Transmission Date: 20250409
  Serious: Yes (Other)
  Sender: NOVARTIS
  Company Number: US-002147023-NVSC2025US020073

PATIENT
  Sex: Female

DRUGS (1)
  1. KESIMPTA [Suspect]
     Active Substance: OFATUMUMAB
     Indication: Product used for unknown indication
     Route: 065

REACTIONS (10)
  - Multiple sclerosis [Unknown]
  - Lymphadenopathy [Unknown]
  - Hyperhidrosis [Unknown]
  - Muscle fatigue [Unknown]
  - Fatigue [Unknown]
  - Limb discomfort [Unknown]
  - Headache [Unknown]
  - Myalgia [Unknown]
  - Cold sweat [Unknown]
  - Feeling cold [Unknown]
